FAERS Safety Report 22781588 (Version 10)
Quarter: 2024Q4

REPORT INFORMATION
  Report Type: Spontaneous
  Country: GB (occurrence: GB)
  Receive Date: 20230803
  Receipt Date: 20241129
  Transmission Date: 20250115
  Serious: Yes (Hospitalization, Disabling, Other)
  Sender: TORRENT PHARMA INC.
  Company Number: None

PATIENT
  Age: 37 Year
  Sex: Male

DRUGS (6)
  1. OLANZAPINE [Suspect]
     Active Substance: OLANZAPINE
     Indication: Product used for unknown indication
     Dosage: OCCLUSIVE DRESSING TECHNIQUE
     Route: 065
  2. ARIPIPRAZOLE [Suspect]
     Active Substance: ARIPIPRAZOLE
     Indication: Product used for unknown indication
     Dosage: VERY VERY HIGH- AT LEAST 400 MG, FOR YEARS
     Route: 065
  3. CLOZAPINE [Suspect]
     Active Substance: CLOZAPINE
     Indication: Product used for unknown indication
     Dosage: OCCLUSIVE DRESSING TECHNIQUE
     Route: 065
  4. ARIPIPRAZOLE [Suspect]
     Active Substance: ARIPIPRAZOLE
     Indication: Product used for unknown indication
     Dosage: 400 MILLIGRAM (AT LEAST 400 MG)
     Route: 065
  5. ABILIFY MAINTENA [Suspect]
     Active Substance: ARIPIPRAZOLE
     Indication: Product used for unknown indication
     Dosage: VERY VERY HIGH- AT LEAST 400 MG, FOR YEARS
     Route: 065
     Dates: start: 20090101
  6. OLANZAPINE [Suspect]
     Active Substance: OLANZAPINE
     Indication: Product used for unknown indication
     Dosage: VERY VERY HIGH, (OCCLUSIVE DRESSING TECHNIQUE)
     Route: 065
     Dates: start: 20140301

REACTIONS (23)
  - Akathisia [Unknown]
  - Diarrhoea [Not Recovered/Not Resolved]
  - Discomfort [Not Recovered/Not Resolved]
  - Somnolence [Unknown]
  - Anxiety [Unknown]
  - Skin irritation [Unknown]
  - Pain [Unknown]
  - Irritability [Unknown]
  - Product prescribing error [Unknown]
  - Visual impairment [Unknown]
  - Personality change [Unknown]
  - Injection site pain [Unknown]
  - Diabetes mellitus [Unknown]
  - Lethargy [Unknown]
  - Weight increased [Unknown]
  - Pruritus [Unknown]
  - Musculoskeletal stiffness [Unknown]
  - Scratch [Unknown]
  - Irritable bowel syndrome [Unknown]
  - Pollakiuria [Unknown]
  - Tension [Unknown]
  - Loss of personal independence in daily activities [Unknown]
  - Product use in unapproved indication [Unknown]

NARRATIVE: CASE EVENT DATE: 20090101
